FAERS Safety Report 11755245 (Version 1)
Quarter: 2015Q4

REPORT INFORMATION
  Report Type: Spontaneous
  Country: US (occurrence: None)
  Receive Date: 20151118
  Receipt Date: 20151118
  Transmission Date: 20160304
  Serious: Yes (Life-Threatening, Hospitalization, Disabling, Other)
  Sender: FDA-Public Use
  Company Number: None

PATIENT
  Age: 76 Year
  Sex: Male
  Weight: 81.65 kg

DRUGS (13)
  1. SENSIPAR [Concomitant]
     Active Substance: CINACALCET HYDROCHLORIDE
  2. FUROSEMIDE. [Concomitant]
     Active Substance: FUROSEMIDE
  3. WARFARIN [Concomitant]
     Active Substance: WARFARIN
  4. INSULIN [Concomitant]
     Active Substance: INSULIN NOS
  5. LISINOPRIL. [Concomitant]
     Active Substance: LISINOPRIL
  6. ACETAMINOPHEN. [Concomitant]
     Active Substance: ACETAMINOPHEN
  7. ASPIRIN. [Concomitant]
     Active Substance: ASPIRIN
  8. ATORVASTATIN [Concomitant]
     Active Substance: ATORVASTATIN
  9. BABY ASPIRIN [Concomitant]
     Active Substance: ASPIRIN
  10. GLIPIZIDE. [Suspect]
     Active Substance: GLIPIZIDE
     Indication: DIABETES MELLITUS
     Route: 048
     Dates: start: 20151104, end: 20151105
  11. CARVEDILOL. [Concomitant]
     Active Substance: CARVEDILOL
  12. ISOSORBIDE. [Concomitant]
     Active Substance: ISOSORBIDE
  13. HYDRALAZINE [Concomitant]
     Active Substance: HYDRALAZINE HYDROCHLORIDE

REACTIONS (7)
  - Dysstasia [None]
  - Vomiting [None]
  - Blood glucose decreased [None]
  - Memory impairment [None]
  - Nervous system disorder [None]
  - Activities of daily living impaired [None]
  - Seizure [None]

NARRATIVE: CASE EVENT DATE: 20151104
